FAERS Safety Report 10343604 (Version 2)
Quarter: 2014Q3

REPORT INFORMATION
  Report Type: Spontaneous
  Country: CA (occurrence: CA)
  Receive Date: 20140725
  Receipt Date: 20140902
  Transmission Date: 20150326
  Serious: Yes (Life-Threatening)
  Sender: FDA-Public Use
  Company Number: CA-GLAXOSMITHKLINE-A1082728A

PATIENT
  Age: 68 Year
  Sex: Female
  Weight: 76.4 kg

DRUGS (7)
  1. RYTHMOL [Suspect]
     Active Substance: PROPAFENONE HYDROCHLORIDE
     Indication: ARRHYTHMIA
     Dosage: 150MG TWICE PER DAY
     Route: 048
     Dates: start: 20140114, end: 20140206
  2. TYLENOL [Concomitant]
     Active Substance: ACETAMINOPHEN
  3. FENOFIBRATE. [Concomitant]
     Active Substance: FENOFIBRATE
  4. ELIQUIS [Suspect]
     Active Substance: APIXABAN
     Indication: CEREBROVASCULAR ACCIDENT PROPHYLAXIS
     Dosage: 5MG TWICE PER DAY
     Route: 048
     Dates: start: 20140109, end: 20140204
  5. METOPROLOL [Concomitant]
     Active Substance: METOPROLOL
  6. LISINOPRIL. [Concomitant]
     Active Substance: LISINOPRIL
  7. SYNTHROID [Concomitant]
     Active Substance: LEVOTHYROXINE SODIUM

REACTIONS (2)
  - Skin exfoliation [Recovered/Resolved]
  - Angioedema [Recovered/Resolved]

NARRATIVE: CASE EVENT DATE: 201402
